FAERS Safety Report 12268877 (Version 3)
Quarter: 2016Q2

REPORT INFORMATION
  Report Type: Spontaneous
  Country: US (occurrence: US)
  Receive Date: 20160414
  Receipt Date: 20160624
  Transmission Date: 20160815
  Serious: Yes (Other)
  Sender: FDA-Public Use
  Company Number: US-GLAXOSMITHKLINE-US2016GSK050303

PATIENT
  Age: 27 Year
  Sex: Female

DRUGS (13)
  1. FLUOXETINE [Concomitant]
     Active Substance: FLUOXETINE HYDROCHLORIDE
     Indication: PRODUCT USED FOR UNKNOWN INDICATION
     Dosage: UNK (TAKE 3 CAPSULE (60 MG) EVERY DAY IN MORNING)
     Route: 048
  2. PROVENTIL [Concomitant]
     Active Substance: ALBUTEROL
  3. VALTREX [Concomitant]
     Active Substance: VALACYCLOVIR HYDROCHLORIDE
     Indication: PRODUCT USED FOR UNKNOWN INDICATION
     Dosage: 1 G, UNK (TAKE 2 TABLET EVRY 12 HOURS)
     Route: 048
  4. BUTABARBITAL [Concomitant]
     Active Substance: BUTABARBITAL
  5. ZITHROMAX [Concomitant]
     Active Substance: AZITHROMYCIN DIHYDRATE
     Indication: PRODUCT USED FOR UNKNOWN INDICATION
     Dosage: UNK (TAKE 2 TABLET EVERY DAY FOR 1 DAY THEN 1 TABLET ONCE DAILY FOR 4 DAYS)
     Route: 048
     Dates: start: 20160316
  6. YAZ [Concomitant]
     Active Substance: DROSPIRENONE\ETHINYL ESTRADIOL
     Indication: PRODUCT USED FOR UNKNOWN INDICATION
     Dosage: UNK (YAZ 28 3 MG - 20 MCG (24), TAKE 1 TABLET EVERY DAY)
  7. EX-LAX REGULAR STRENGTH CHOCOLATED STIMULANT LAXATIVE [Suspect]
     Active Substance: SENNOSIDES
     Indication: PRODUCT USED FOR UNKNOWN INDICATION
     Dosage: UNK, SINGLE
     Route: 048
     Dates: start: 20160308, end: 20160308
  8. ZYRTEC [Concomitant]
     Active Substance: CETIRIZINE HYDROCHLORIDE
     Indication: PRODUCT USED FOR UNKNOWN INDICATION
     Dosage: UNK, ONE TABLET DAILY
     Route: 048
  9. VENTOLINE AEROSOL INHALATIONAL POWDER [Concomitant]
     Indication: PRODUCT USED FOR UNKNOWN INDICATION
     Dosage: UNK (2 PUFFS EVERY 4-6 HOURS AS NEEDED)
     Route: 055
     Dates: start: 20160411
  10. PROAIR HFA AEROSOL INHALER [Concomitant]
     Indication: PRODUCT USED FOR UNKNOWN INDICATION
     Dosage: UNK, INHALE 2 PUFFS EVERY 4-6 HOURS AS NEEDED
     Route: 055
  11. ATIVAN [Concomitant]
     Active Substance: LORAZEPAM
     Indication: PRODUCT USED FOR UNKNOWN INDICATION
     Dosage: UNK, (TAKE 1 TABLET 2 TIMES EVERY DAY AS NEEDED)
     Route: 048
  12. MOBIC TABLET [Concomitant]
     Indication: PRODUCT USED FOR UNKNOWN INDICATION
     Dosage: UNK (TAKE ONE TABLET (7.5 MG) EVERY DAY W/A MEAL)
     Route: 048
  13. PHENTERMINE. [Concomitant]
     Active Substance: PHENTERMINE
     Indication: PRODUCT USED FOR UNKNOWN INDICATION
     Dosage: UNK, (TAKE 1 TABLET EVRY DAY BEFORE BREAKFAST)
     Route: 048

REACTIONS (27)
  - Emergency care examination [Recovered/Resolved]
  - Throat tightness [Unknown]
  - Memory impairment [Unknown]
  - Tremor [Unknown]
  - Heart rate irregular [Unknown]
  - Crying [Not Recovered/Not Resolved]
  - Headache [Unknown]
  - Amnesia [Unknown]
  - Mood swings [Unknown]
  - Back pain [Unknown]
  - Palpitations [Not Recovered/Not Resolved]
  - Anxiety [Unknown]
  - Vomiting [Unknown]
  - Sinusitis [Unknown]
  - Dyspnoea [Unknown]
  - Weight loss poor [Unknown]
  - Neck pain [Unknown]
  - Migraine [Not Recovered/Not Resolved]
  - Anxiety [Unknown]
  - Rhinorrhoea [Unknown]
  - Nausea [Unknown]
  - Fatigue [Unknown]
  - Oropharyngeal pain [Unknown]
  - Anaphylactic reaction [Recovered/Resolved]
  - Drug hypersensitivity [Not Recovered/Not Resolved]
  - Dizziness [Unknown]
  - Impaired work ability [Unknown]

NARRATIVE: CASE EVENT DATE: 20160308
